FAERS Safety Report 5144933-X (Version None)
Quarter: 2006Q4

REPORT INFORMATION
  Report Type: 
  Country: None (occurrence: None)
  Receive Date: 20061107
  Receipt Date: 20061025
  Transmission Date: 20070319
  Serious: Yes (Hospitalization)
  Sender: FDA-Public Use
  Company Number: FR-AVENTIS-200613753FR

PATIENT
  Age: 39 Year
  Sex: Female

DRUGS (6)
  1. FLAGYL [Suspect]
     Indication: GENITAL INFECTION FEMALE
     Route: 067
     Dates: start: 20051212, end: 20051230
  2. FLAGYL [Suspect]
     Indication: METRORRHAGIA
     Route: 067
     Dates: start: 20051212, end: 20051230
  3. FLAGYL [Suspect]
     Indication: PELVIC PAIN
     Route: 067
     Dates: start: 20051212, end: 20051230
  4. SECNOL [Suspect]
     Indication: GENITAL INFECTION FEMALE
     Route: 048
     Dates: start: 20051212, end: 20060101
  5. SECNOL [Suspect]
     Indication: METRORRHAGIA
     Route: 048
     Dates: start: 20051212, end: 20060101
  6. SECNOL [Suspect]
     Indication: PELVIC PAIN
     Route: 048
     Dates: start: 20051212, end: 20060101

REACTIONS (7)
  - ARTHRALGIA [None]
  - C-REACTIVE PROTEIN INCREASED [None]
  - LEUKOCYTOSIS [None]
  - OEDEMA PERIPHERAL [None]
  - POLYARTHRITIS [None]
  - PYREXIA [None]
  - RED BLOOD CELL SEDIMENTATION RATE INCREASED [None]
